FAERS Safety Report 16584489 (Version 1)
Quarter: 2019Q3

REPORT INFORMATION
  Report Type: Spontaneous
  Country: US (occurrence: US)
  Receive Date: 20190717
  Receipt Date: 20190717
  Transmission Date: 20191004
  Serious: Yes (Other)
  Sender: FDA-Public Use
  Company Number: US-BRISTOL-MYERS SQUIBB COMPANY-BMS-2019-070490

PATIENT
  Age: 71 Year
  Sex: Female
  Weight: 40.82 kg

DRUGS (1)
  1. COUMADINE [Suspect]
     Active Substance: WARFARIN SODIUM
     Indication: PRODUCT USED FOR UNKNOWN INDICATION
     Dosage: UNK
     Route: 065
     Dates: start: 2011

REACTIONS (3)
  - Cerebrovascular accident [Unknown]
  - Electrolyte imbalance [Unknown]
  - Fall [Unknown]

NARRATIVE: CASE EVENT DATE: 2013
